FAERS Safety Report 15357597 (Version 1)
Quarter: 2018Q3

REPORT INFORMATION
  Report Type: Spontaneous
  Country: US (occurrence: US)
  Receive Date: 20180906
  Receipt Date: 20180906
  Transmission Date: 20181010
  Serious: Yes (Other)
  Sender: FDA-Public Use
  Company Number: US-ASTRAZENECA-2018SF09513

PATIENT
  Age: 22332 Day
  Sex: Female
  Weight: 88.5 kg

DRUGS (51)
  1. PROPRANOLOL [Concomitant]
     Active Substance: PROPRANOLOL HYDROCHLORIDE
     Indication: HYPERTENSION
     Dates: start: 2010
  2. IBUPROFEN. [Concomitant]
     Active Substance: IBUPROFEN
     Indication: PAIN
     Dates: start: 2014
  3. RANITIDINE. [Concomitant]
     Active Substance: RANITIDINE
  4. ZOLOFT [Concomitant]
     Active Substance: SERTRALINE HYDROCHLORIDE
     Dosage: TAKE TWO TABLETS ONCE A DAY
     Route: 048
     Dates: start: 20150219
  5. TOPIRAMATE. [Concomitant]
     Active Substance: TOPIRAMATE
  6. CLARITHROMYCIN. [Concomitant]
     Active Substance: CLARITHROMYCIN
     Indication: DYSPEPSIA
     Route: 065
     Dates: start: 2013, end: 2015
  7. PREVACID [Suspect]
     Active Substance: LANSOPRAZOLE
     Indication: DYSPEPSIA
     Dosage: GENERIC LANSOPRAZOLE
     Route: 065
     Dates: start: 2010
  8. OXYCODONE [Concomitant]
     Active Substance: OXYCODONE
     Indication: PAIN
     Dates: start: 2007, end: 2013
  9. NAPROXEN. [Concomitant]
     Active Substance: NAPROXEN
     Indication: PAIN
     Dates: start: 2010
  10. SINGULAIR ORAL TABLET [Concomitant]
     Dosage: TAKE 1 TABLET AT NIGHT.
     Route: 048
     Dates: start: 20150219
  11. MECLIZINE [Concomitant]
     Active Substance: MECLIZINE HYDROCHLORIDE
  12. MONTELUKAST [Concomitant]
     Active Substance: MONTELUKAST SODIUM
  13. PRAVASTATIN. [Concomitant]
     Active Substance: PRAVASTATIN
  14. SERTRALINE [Concomitant]
     Active Substance: SERTRALINE HYDROCHLORIDE
  15. HYDROMORPHONE [Concomitant]
     Active Substance: HYDROMORPHONE
  16. FLOVENT [Concomitant]
     Active Substance: FLUTICASONE PROPIONATE
     Dates: start: 2006, end: 2010
  17. TRAMADOL. [Concomitant]
     Active Substance: TRAMADOL
     Indication: PAIN
     Dates: start: 2007, end: 2013
  18. VITAMIN D3 [Concomitant]
     Active Substance: CHOLECALCIFEROL
     Indication: RENAL DISORDER
  19. DAYPRO [Concomitant]
     Active Substance: OXAPROZIN
     Dosage: 1?2 TIMES A WEE FOR 3?4 YEARS.
  20. GABAPENTIN. [Concomitant]
     Active Substance: GABAPENTIN
  21. PENICILLIN G [Concomitant]
     Active Substance: PENICILLIN G
  22. PROVENTIL [Concomitant]
     Active Substance: ALBUTEROL
     Indication: ASTHMA
     Dates: start: 2010, end: 2013
  23. TOPIRAMATE. [Concomitant]
     Active Substance: TOPIRAMATE
     Indication: PAIN
     Dates: start: 2014
  24. REQUIP [Concomitant]
     Active Substance: ROPINIROLE HYDROCHLORIDE
     Dosage: TAKE 1 TABLET EVERY NIGHT AT BEDTIME.
     Route: 048
     Dates: start: 20151125
  25. HYOSCYAMINE. [Concomitant]
     Active Substance: HYOSCYAMINE
  26. PANTOPRAZOLE [Suspect]
     Active Substance: PANTOPRAZOLE
     Indication: DYSPEPSIA
     Route: 065
     Dates: start: 20130801, end: 2015
  27. PATADAY OPHTHALMIC SOLUTION [Concomitant]
     Dosage: TAKE 1 DROP ONCE A DAY
     Dates: start: 20150219
  28. HYOSCYAMINE SULFATE. [Concomitant]
     Active Substance: HYOSCYAMINE SULFATE
     Dosage: TAKE 1 TABLET THREE TIMES A DAY.
     Route: 048
     Dates: start: 20150326
  29. RENOVA EXTERNAL CREAM [Concomitant]
     Dates: start: 20150219
  30. CHOLECALCIFEROL [Concomitant]
     Active Substance: CHOLECALCIFEROL
     Dates: start: 20150219
  31. CODEINE [Concomitant]
     Active Substance: CODEINE
     Indication: DYSPEPSIA
     Route: 065
     Dates: start: 2013, end: 2015
  32. PREVACID [Suspect]
     Active Substance: LANSOPRAZOLE
     Indication: DYSPEPSIA
     Route: 065
     Dates: start: 20060824, end: 2010
  33. ALBUTEROL. [Concomitant]
     Active Substance: ALBUTEROL
     Indication: ASTHMA
     Dates: start: 2011, end: 2016
  34. CRESTOR [Concomitant]
     Active Substance: ROSUVASTATIN CALCIUM
     Indication: BLOOD CHOLESTEROL INCREASED
     Dates: start: 2016
  35. OXAPROZIN. [Concomitant]
     Active Substance: OXAPROZIN
     Indication: PAIN
     Dates: start: 20160720, end: 2016
  36. ZANTAC [Concomitant]
     Active Substance: RANITIDINE HYDROCHLORIDE
  37. MECLIZINE [Concomitant]
     Active Substance: MECLIZINE HYDROCHLORIDE
     Dosage: TAKE 1 TABLET EVERYSIX HOURS AS NEEDED.
     Route: 048
     Dates: start: 20150326
  38. NASONEX [Concomitant]
     Active Substance: MOMETASONE FUROATE
     Route: 045
     Dates: start: 20150219
  39. NEXIUM [Suspect]
     Active Substance: ESOMEPRAZOLE MAGNESIUM
     Indication: DYSPEPSIA
     Route: 048
  40. NEXIUM 24HR [Suspect]
     Active Substance: ESOMEPRAZOLE MAGNESIUM
     Indication: DYSPEPSIA
     Route: 048
  41. LYRICA [Concomitant]
     Active Substance: PREGABALIN
     Indication: PAIN
     Dates: start: 2009, end: 2010
  42. PROVENTIL [Concomitant]
     Active Substance: ALBUTEROL
     Indication: COUGH
     Dates: start: 2010, end: 2013
  43. GABAPENTIN. [Concomitant]
     Active Substance: GABAPENTIN
     Indication: PAIN
     Dates: start: 2016
  44. MOMETASONE FUROATE. [Concomitant]
     Active Substance: MOMETASONE FUROATE
     Dosage: TAKE 1 APPLICATION ONCE A DAY AS NEEDED.
     Dates: start: 20150219
  45. PROAIR HFA [Concomitant]
     Active Substance: ALBUTEROL SULFATE
     Dosage: TAKE TWO TABLETS ONCE A DAY
     Dates: start: 20150219
  46. TRETINOIN. [Concomitant]
     Active Substance: TRETINOIN
  47. DEXILANT [Suspect]
     Active Substance: DEXLANSOPRAZOLE
     Indication: DYSPEPSIA
     Dosage: TAKE 1 CAPSULE ONCE A DAY
     Route: 048
     Dates: start: 20100817
  48. BUSPIRONE [Concomitant]
     Active Substance: BUSPIRONE HYDROCHLORIDE
     Indication: ANXIETY
     Dates: start: 2006, end: 2010
  49. SERTRALINE [Concomitant]
     Active Substance: SERTRALINE HYDROCHLORIDE
     Indication: ANXIETY
     Dates: start: 2006, end: 2016
  50. BIAXIN [Concomitant]
     Active Substance: CLARITHROMYCIN
  51. SUMATRIPTAN. [Concomitant]
     Active Substance: SUMATRIPTAN

REACTIONS (2)
  - Chronic kidney disease [Not Recovered/Not Resolved]
  - Renal failure [Unknown]

NARRATIVE: CASE EVENT DATE: 20150326
